FAERS Safety Report 9197945 (Version 1)
Quarter: 2013Q1

REPORT INFORMATION
  Report Type: Spontaneous
  Country: US (occurrence: US)
  Receive Date: 20130328
  Receipt Date: 20130328
  Transmission Date: 20140127
  Serious: No
  Sender: FDA-Public Use
  Company Number: US-B.I. PHARMACEUTICALS,INC./RIDGEFIELD-2013-BI-07782BP

PATIENT
  Sex: Female
  Weight: 70 kg

DRUGS (3)
  1. SPIRIVA [Suspect]
     Indication: EMPHYSEMA
     Dosage: 18 MCG
     Route: 055
     Dates: start: 201301
  2. ADVAIR [Concomitant]
     Indication: EMPHYSEMA
     Route: 055
     Dates: start: 201301
  3. PROAIR [Concomitant]
     Indication: INHALATION THERAPY
     Route: 055
     Dates: start: 20121210

REACTIONS (3)
  - Dyspnoea [Not Recovered/Not Resolved]
  - Product quality issue [Recovered/Resolved]
  - Product quality issue [Recovered/Resolved]
